FAERS Safety Report 7419217-7 (Version None)
Quarter: 2011Q2

REPORT INFORMATION
  Report Type: 
  Country: None (occurrence: None)
  Receive Date: 20110415
  Receipt Date: 20110401
  Transmission Date: 20111010
  Serious: Yes (Hospitalization)
  Sender: FDA-Public Use
  Company Number: JP-GENENTECH-304530

PATIENT
  Sex: Male

DRUGS (5)
  1. OFLOXACIN [Concomitant]
     Indication: PRODUCT USED FOR UNKNOWN INDICATION
     Dosage: UNK
     Dates: start: 20100401, end: 20100501
  2. VIGAMOX [Concomitant]
     Indication: PRODUCT USED FOR UNKNOWN INDICATION
     Dosage: UNK
     Dates: start: 20100401, end: 20100401
  3. LUCENTIS [Suspect]
     Dosage: 0.5 ML, UNK
     Route: 031
     Dates: start: 20100517
  4. LUCENTIS [Suspect]
     Indication: MACULAR DEGENERATION
     Dosage: 0.5 ML, UNKNOWN
     Route: 031
     Dates: start: 20100407
  5. LUCENTIS [Suspect]
     Dosage: 0.5 ML, UNK
     Route: 031
     Dates: start: 20100707

REACTIONS (4)
  - RESTLESSNESS [None]
  - PORIOMANIA [None]
  - DEMENTIA [None]
  - ABNORMAL BEHAVIOUR [None]
